FAERS Safety Report 8230866-9 (Version None)
Quarter: 2012Q1

REPORT INFORMATION
  Report Type: 
  Country: None (occurrence: None)
  Receive Date: 20120323
  Receipt Date: 20120316
  Transmission Date: 20120608
  Serious: Yes (Hospitalization)
  Sender: FDA-Public Use
  Company Number: FR-BRISTOL-MYERS SQUIBB COMPANY-16420143

PATIENT
  Age: 87 Year
  Sex: Female
  Weight: 49 kg

DRUGS (9)
  1. RABEPRAZOLE SODIUM [Suspect]
  2. CALCIUM CARBONATE [Suspect]
  3. FUROSEMIDE [Suspect]
  4. ATHYMIL [Suspect]
  5. ACETAMINOPHEN AND TRAMADOL HCL [Suspect]
  6. IPERTEN [Suspect]
     Dosage: IPERTEN 10 IS THE STRENGTH. 1DF= 1TAB.
  7. COUMADIN [Suspect]
     Route: 048
     Dates: start: 20050101, end: 20110918
  8. FOSINOPRIL SODIUM [Suspect]
  9. IMOVANE [Suspect]

REACTIONS (1)
  - GASTROINTESTINAL HAEMORRHAGE [None]
